FAERS Safety Report 5086349-0 (Version None)
Quarter: 2006Q3

REPORT INFORMATION
  Report Type: 
  Country: None (occurrence: None)
  Receive Date: 20060703
  Receipt Date: 20060306
  Transmission Date: 20061208
  Serious: No
  Sender: FDA-Public Use
  Company Number: 2006S1002033

PATIENT
  Age: 60 Year
  Sex: Female

DRUGS (10)
  1. CLOZAPINE [Suspect]
     Dosage: 500 MG;QD;ORAL
     Route: 048
     Dates: start: 20050801
  2. RISPERIDONE [Concomitant]
  3. OMEPRAZOLE [Concomitant]
  4. GLIPIZIDE [Concomitant]
  5. VENLAFAXINE HCL [Concomitant]
  6. VALPROATE SODIUM [Concomitant]
  7. LAMOTRIGINE [Concomitant]
  8. ROSIGLITAZONE MALEATE [Concomitant]
  9. SETRALINE HCL [Concomitant]
  10. TRIHEXYPHENIDYL HYDROCHLORIDE [Concomitant]

REACTIONS (2)
  - GRANULOCYTOPENIA [None]
  - LEUKOPENIA [None]
